FAERS Safety Report 6759759-0 (Version None)
Quarter: 2010Q2

REPORT INFORMATION
  Report Type: 
  Country: None (occurrence: None)
  Receive Date: 20100604
  Receipt Date: 20100521
  Transmission Date: 20101027
  Serious: Yes (Other)
  Sender: FDA-Public Use
  Company Number: 2010AL003156

PATIENT
  Age: 69 Year
  Sex: Female

DRUGS (9)
  1. FLUOXETINE [Suspect]
     Indication: DEPRESSION
     Dosage: 20 MG; QD;
  2. CLOZARIL [Concomitant]
  3. ATENOLOL [Concomitant]
  4. SIMVASTATIN [Concomitant]
  5. VALPROIC ACID [Concomitant]
  6. OXYBUTYNIN CHLORIDE [Concomitant]
  7. LISINOPRIL [Concomitant]
  8. METFORMIN [Concomitant]
  9. BETAHISTINE [Concomitant]

REACTIONS (1)
  - PLATELET COUNT DECREASED [None]
